FAERS Safety Report 7347389-1 (Version None)
Quarter: 2011Q1

REPORT INFORMATION
  Report Type: 
  Country: None (occurrence: None)
  Receive Date: 20110311
  Receipt Date: 20110307
  Transmission Date: 20110831
  Serious: Yes (Life-Threatening, Hospitalization)
  Sender: FDA-Public Use
  Company Number: FR-ROCHE-764067

PATIENT
  Age: 49 Year
  Sex: Male

DRUGS (3)
  1. RIVOTRIL [Suspect]
     Indication: AGITATION
     Route: 030
     Dates: start: 20100913, end: 20100918
  2. CLOPIXOL [Suspect]
     Indication: AGITATION
     Dosage: DRUG REPORTED AS CLOPIXOL 2%, FREQUENCY:TOTAL DOSE FOR 3 DAYS
     Route: 048
     Dates: start: 20100913, end: 20100918
  3. TERCIAN [Suspect]
     Indication: AGITATION
     Dosage: 50 MG/5 ML
     Route: 030
     Dates: start: 20100913, end: 20100918

REACTIONS (3)
  - DYSPHAGIA [None]
  - SOMNOLENCE [None]
  - PNEUMONIA ASPIRATION [None]
